FAERS Safety Report 8457660-8 (Version None)
Quarter: 2012Q2

REPORT INFORMATION
  Report Type: 
  Country: None (occurrence: None)
  Receive Date: 20120622
  Receipt Date: 20120618
  Transmission Date: 20120825
  Serious: No
  Sender: FDA-Public Use
  Company Number: US-PFIZER INC-2012147319

PATIENT
  Sex: Male
  Weight: 109 kg

DRUGS (5)
  1. ALPRAZOLAM [Concomitant]
     Dosage: 0.25 MG, 2X/DAY
  2. LIPITOR [Suspect]
     Indication: BLOOD CHOLESTEROL INCREASED
     Dosage: 40 MG, DAILY
     Dates: start: 20120518
  3. ALPRAZOLAM [Concomitant]
     Indication: ANXIETY
     Dosage: 1 MG, DAILY
     Route: 048
  4. CARVEDILOL [Concomitant]
     Indication: HYPERTENSION
     Dosage: 6.25 MG, 3X/DAY
  5. CITALOPRAM [Concomitant]
     Indication: DEPRESSION
     Dosage: 20 MG, DAILY

REACTIONS (1)
  - HEPATIC ENZYME INCREASED [None]
